FAERS Safety Report 9769580 (Version 1)
Quarter: 2013Q4

REPORT INFORMATION
  Report Type: Spontaneous
  Country: US (occurrence: US)
  Receive Date: 20131218
  Receipt Date: 20131218
  Transmission Date: 20140711
  Serious: No
  Sender: FDA-Public Use
  Company Number: US-SHIONOGI, INC-2013000363

PATIENT
  Sex: Female

DRUGS (2)
  1. OSPHENA [Suspect]
     Indication: VAGINAL DISORDER
     Dosage: UNK
     Route: 065
     Dates: start: 2013
  2. OSPHENA [Suspect]
     Indication: OFF LABEL USE

REACTIONS (1)
  - Off label use [Unknown]
